FAERS Safety Report 9363012 (Version 8)
Quarter: 2014Q2

REPORT INFORMATION
  Report Type: Report from Study
  Country: DE (occurrence: DE)
  Receive Date: 20130624
  Receipt Date: 20140520
  Transmission Date: 20141212
  Serious: Yes (Hospitalization)
  Sender: FDA-Public Use
  Company Number: DE-ROCHE-1236576

PATIENT
  Age: 74 Year
  Sex: Female
  Weight: 91 kg

DRUGS (30)
  1. TOCILIZUMAB [Suspect]
     Indication: RHEUMATOID ARTHRITIS
     Dosage: LAST DOSE PRIOR TO SAE: 16/APR/2013
     Route: 042
     Dates: start: 20130123
  2. HYDROCHLOROTHIAZIDE [Concomitant]
     Indication: HYPERTENSION
     Route: 048
     Dates: start: 200703
  3. METHOTREXATE [Concomitant]
     Indication: RHEUMATOID ARTHRITIS
     Route: 048
     Dates: start: 201009, end: 20140216
  4. FOLSAN [Concomitant]
     Route: 048
     Dates: start: 201009, end: 20131024
  5. FOLSAN [Concomitant]
     Route: 048
     Dates: start: 20131025, end: 20140217
  6. ACETYLSALICYLIC ACID [Concomitant]
     Route: 048
     Dates: start: 200703
  7. IBUPROFEN [Concomitant]
     Indication: RHEUMATOID ARTHRITIS
     Route: 048
     Dates: start: 1993, end: 20130107
  8. IBUPROFEN [Concomitant]
     Route: 048
     Dates: start: 20130124, end: 20130219
  9. VOLTAREN [Concomitant]
     Indication: RHEUMATOID ARTHRITIS
     Route: 048
     Dates: start: 20130108, end: 20130110
  10. VOLTAREN [Concomitant]
     Route: 048
     Dates: start: 20130108, end: 20130110
  11. PROVAS (GERMANY) [Concomitant]
     Indication: HYPERTENSION
     Route: 048
     Dates: start: 200703
  12. SIMVASTATIN [Concomitant]
     Indication: HYPERLIPIDAEMIA
     Route: 048
     Dates: start: 200703
  13. ALENDRONIC ACID [Concomitant]
     Indication: OSTEOPOROSIS
     Route: 048
     Dates: start: 2009
  14. EUTHYROX [Concomitant]
     Indication: THYROIDECTOMY
     Route: 048
     Dates: start: 1987
  15. CYANOCOBALAMIN [Concomitant]
     Indication: VITAMIN B12 DEFICIENCY
     Route: 048
     Dates: start: 2009
  16. ARCOXIA [Concomitant]
     Indication: RHEUMATOID ARTHRITIS
     Route: 048
     Dates: start: 20130112, end: 20130219
  17. CELEBREX [Concomitant]
     Indication: RHEUMATOID ARTHRITIS
     Route: 048
     Dates: start: 20130220, end: 20130527
  18. CELEBREX [Concomitant]
     Route: 048
     Dates: start: 20130528, end: 20130902
  19. CELEBREX [Concomitant]
     Route: 048
     Dates: start: 20130903
  20. PANTOZOL (GERMANY) [Concomitant]
     Route: 048
     Dates: start: 20130528, end: 20130715
  21. PANTOZOL (GERMANY) [Concomitant]
     Route: 048
     Dates: start: 201305
  22. OXYGESIC [Concomitant]
     Route: 048
     Dates: start: 20130611, end: 20130626
  23. CLEXANE [Concomitant]
     Indication: PNEUMONIA
     Route: 058
     Dates: start: 20130611, end: 20130715
  24. CLEXANE [Concomitant]
     Route: 058
     Dates: start: 20140222, end: 20140318
  25. CARBOSTESIN [Concomitant]
     Indication: CARPAL TUNNEL SYNDROME
     Route: 014
     Dates: start: 20130607, end: 20130607
  26. CARBOSTESIN [Concomitant]
     Route: 014
     Dates: start: 20130610, end: 20130610
  27. VALSARTAN [Concomitant]
     Indication: PNEUMONIA
     Route: 048
     Dates: start: 20140223
  28. VERAHEXAL [Concomitant]
     Indication: PNEUMONIA
     Route: 048
     Dates: start: 20140223
  29. FUROSEMIDE [Concomitant]
     Indication: PNEUMONIA
     Route: 048
     Dates: start: 20140223
  30. DIGITOXIN [Concomitant]
     Indication: ARRHYTHMIA
     Route: 048
     Dates: start: 201402

REACTIONS (3)
  - Rheumatoid arthritis [Recovered/Resolved]
  - Tendon rupture [Recovered/Resolved]
  - Rheumatoid arthritis [Recovered/Resolved]
